FAERS Safety Report 23035195 (Version 1)
Quarter: 2023Q4

REPORT INFORMATION
  Report Type: Spontaneous
  Country: JP (occurrence: JP)
  Receive Date: 20231005
  Receipt Date: 20231005
  Transmission Date: 20240110
  Serious: Yes (Death, Hospitalization, Other)
  Sender: FDA-Public Use
  Company Number: JP-TAKEDA-2023TJP012380

PATIENT
  Age: 42 Year
  Sex: Female
  Weight: 60.6 kg

DRUGS (2)
  1. ALUNBRIG [Suspect]
     Active Substance: BRIGATINIB
     Indication: Non-small cell lung cancer
     Dosage: 90 MILLIGRAM
     Route: 065
     Dates: start: 20230531, end: 20230606
  2. ALUNBRIG [Suspect]
     Active Substance: BRIGATINIB
     Dosage: 180 MILLIGRAM
     Route: 065
     Dates: start: 20230607, end: 20230820

REACTIONS (3)
  - Drug ineffective [Fatal]
  - Pericardial effusion [Unknown]
  - Pulmonary artery thrombosis [Unknown]

NARRATIVE: CASE EVENT DATE: 20230615
